FAERS Safety Report 15586625 (Version 1)
Quarter: 2018Q4

REPORT INFORMATION
  Report Type: Spontaneous
  Country: US (occurrence: US)
  Receive Date: 20181105
  Receipt Date: 20181105
  Transmission Date: 20190205
  Serious: No
  Sender: FDA-Public Use
  Company Number: None

PATIENT
  Age: 52 Year
  Sex: Female
  Weight: 65.7 kg

DRUGS (5)
  1. YUVAFEM [Suspect]
     Active Substance: ESTRADIOL HEMIHYDRATE
     Indication: MENOPAUSAL SYMPTOMS
     Dosage: ?          QUANTITY:1 TABLET(S);OTHER FREQUENCY:TWICE A WEEK;?
     Route: 067
     Dates: start: 20170701, end: 20180925
  2. VAGIFEM [Concomitant]
     Active Substance: ESTRADIOL
  3. MULTIVITAMINS [Concomitant]
     Active Substance: VITAMINS
  4. CALCIUM [Concomitant]
     Active Substance: CALCIUM
  5. VITAMIN D [Concomitant]
     Active Substance: CHOLECALCIFEROL

REACTIONS (9)
  - Vaginal discharge [None]
  - Vulvovaginal discomfort [None]
  - Condition aggravated [None]
  - Product complaint [None]
  - Vulvovaginal burning sensation [None]
  - Device issue [None]
  - Vulvovaginal dryness [None]
  - Product substitution issue [None]
  - Pollakiuria [None]

NARRATIVE: CASE EVENT DATE: 20180920
